FAERS Safety Report 15903788 (Version 3)
Quarter: 2019Q1

REPORT INFORMATION
  Report Type: Spontaneous
  Country: US (occurrence: US)
  Receive Date: 20190203
  Receipt Date: 20190315
  Transmission Date: 20190417
  Serious: No
  Sender: FDA-Public Use
  Company Number: US-CELGENEUS-USA-20190109010

PATIENT
  Sex: Female

DRUGS (15)
  1. DIFLUCAN [Concomitant]
     Active Substance: FLUCONAZOLE
     Indication: CONDITION AGGRAVATED
     Dosage: 200 MILLIGRAM
     Route: 048
     Dates: start: 20180608
  2. CLOTRIMAZOLE AND BETAMETHASONE DIPROPIONATE [Concomitant]
     Active Substance: BETAMETHASONE\BETAMETHASONE DIPROPIONATE\CLOTRIMAZOLE
     Indication: RASH
     Dosage: 1%-0.05%
     Route: 061
     Dates: start: 20141006
  3. OTEZLA [Suspect]
     Active Substance: APREMILAST
     Indication: PSORIASIS
  4. ENSTILAR [Concomitant]
     Active Substance: BETAMETHASONE DIPROPIONATE\CALCIPOTRIENE HYDRATE
     Dosage: 2 GRAM
     Route: 061
     Dates: start: 20181010
  5. ENSTILAR [Concomitant]
     Active Substance: BETAMETHASONE DIPROPIONATE\CALCIPOTRIENE HYDRATE
     Indication: PSORIASIS
     Dosage: 0.005%-0.064%
     Route: 061
     Dates: start: 20180123
  6. ENSTILAR [Concomitant]
     Active Substance: BETAMETHASONE DIPROPIONATE\CALCIPOTRIENE HYDRATE
     Dosage: 2 GRAM
     Route: 061
     Dates: start: 20180925
  7. DIFLUCAN [Concomitant]
     Active Substance: FLUCONAZOLE
     Dosage: 150 MILLIGRAM
     Route: 048
     Dates: start: 20180417
  8. CLOTRIMAZOLE AND BETAMETHASONE DIPROPIONATE [Concomitant]
     Active Substance: BETAMETHASONE\BETAMETHASONE DIPROPIONATE\CLOTRIMAZOLE
     Indication: CONDITION AGGRAVATED
     Dosage: 1%-0.05%
     Route: 061
     Dates: start: 20151221
  9. TRIAMCINOLONE ACETONIDE. [Concomitant]
     Active Substance: TRIAMCINOLONE ACETONIDE
     Indication: RASH
     Route: 061
     Dates: start: 20180817
  10. CEFADROXIL. [Concomitant]
     Active Substance: CEFADROXIL
     Indication: PRODUCT USED FOR UNKNOWN INDICATION
     Dosage: 1000 MILLIGRAM
     Route: 048
     Dates: start: 20180420
  11. CLOTRIMAZOLE AND BETAMETHASONE DIPROPIONATE [Concomitant]
     Active Substance: BETAMETHASONE\BETAMETHASONE DIPROPIONATE\CLOTRIMAZOLE
     Dosage: 1%-0.05%
     Route: 061
     Dates: start: 20160607
  12. ECONAZOLE. [Concomitant]
     Active Substance: ECONAZOLE NITRATE
     Indication: CONDITION AGGRAVATED
     Dosage: 2 PERCENT
     Route: 061
     Dates: start: 20160607
  13. OTEZLA [Suspect]
     Active Substance: APREMILAST
     Indication: PSORIASIS
     Dosage: 60 MILLIGRAM
     Route: 048
     Dates: start: 20180612, end: 20190214
  14. CALCITRIOL. [Concomitant]
     Active Substance: CALCITRIOL
     Indication: PRODUCT USED FOR UNKNOWN INDICATION
     Dosage: 3MCG/G
     Route: 061
     Dates: start: 20180205
  15. ECONAZOLE. [Concomitant]
     Active Substance: ECONAZOLE NITRATE
     Indication: RASH
     Dosage: 2 PERCENT
     Route: 061
     Dates: start: 20141006

REACTIONS (1)
  - Fungal infection [Recovering/Resolving]
